FAERS Safety Report 8884851 (Version 1)
Quarter: 2012Q4

REPORT INFORMATION
  Report Type: 
  Country: MX (occurrence: MX)
  Receive Date: 20121102
  Receipt Date: 20121102
  Transmission Date: 20130627
  Serious: Yes (Other)
  Sender: FDA-Public Use
  Company Number: MX-JNJFOC-20121014363

PATIENT
  Age: 52 Year
  Sex: Female
  Weight: 11 kg

DRUGS (10)
  1. REMICADE [Suspect]
     Indication: ANKYLOSING SPONDYLITIS
     Route: 042
     Dates: start: 201109
  2. GABAPENTIN [Concomitant]
     Route: 065
  3. DEFLAZACORT [Concomitant]
     Route: 048
  4. SULINDAC [Concomitant]
     Route: 048
  5. OMEPRAZOLE [Concomitant]
     Route: 065
  6. SUCRALFATE [Concomitant]
     Route: 048
  7. PAROXETINE [Concomitant]
     Route: 048
  8. FOLIC ACID [Concomitant]
     Route: 048
  9. ACARBOSE [Concomitant]
     Route: 048
  10. DEXTROPROPOXYPHENE [Concomitant]
     Route: 065

REACTIONS (1)
  - Hodgkin^s disease [Unknown]
